FAERS Safety Report 8928789 (Version 1)
Quarter: 2012Q4

REPORT INFORMATION
  Report Type: 
  Country: DE (occurrence: DE)
  Receive Date: 20121128
  Receipt Date: 20121128
  Transmission Date: 20130627
  Serious: Yes (Hospitalization)
  Sender: FDA-Public Use
  Company Number: DE-009507513-1211DEU009727

PATIENT
  Age: 52 Year
  Sex: Female

DRUGS (5)
  1. MIRTAZAPINE [Suspect]
     Indication: DEPRESSION
     Dosage: 15 mg, qd
     Route: 048
     Dates: start: 20120124, end: 20120125
  2. MIRTAZAPINE [Suspect]
     Dosage: 30 mg, qd
     Route: 048
     Dates: start: 20120126, end: 20120209
  3. LORAZEPAM [Concomitant]
     Indication: DEPRESSION
     Dosage: 2 mg, qd
     Route: 048
     Dates: start: 20120125, end: 20120129
  4. LORAZEPAM [Concomitant]
     Dosage: 1.5 mg, qd
     Route: 048
     Dates: start: 20120130, end: 20120202
  5. LORAZEPAM [Concomitant]
     Dosage: 0.5 mg, qd
     Route: 048
     Dates: start: 20120203, end: 20120213

REACTIONS (1)
  - Restless legs syndrome [Recovering/Resolving]
